FAERS Safety Report 11316413 (Version 1)
Quarter: 2015Q3

REPORT INFORMATION
  Report Type: Spontaneous
  Country: NL (occurrence: NL)
  Receive Date: 20150728
  Receipt Date: 20150728
  Transmission Date: 20151125
  Serious: Yes (Death, Other)
  Sender: FDA-Public Use
  Company Number: NL-JNJFOC-20150711748

PATIENT
  Age: 58 Year
  Sex: Female
  Weight: 51 kg

DRUGS (2)
  1. RISPERIDONE TABLET OMHULD 1 MG [Suspect]
     Active Substance: RISPERIDONE
     Indication: ABNORMAL BEHAVIOUR
     Route: 048
     Dates: start: 20150622, end: 20150630
  2. RISPERIDONE TABLET OMHULD 1 MG [Suspect]
     Active Substance: RISPERIDONE
     Indication: ABNORMAL BEHAVIOUR
     Dosage: AS NECESSARY
     Route: 048
     Dates: start: 20150626, end: 20150628

REACTIONS (6)
  - Cogwheel rigidity [Unknown]
  - Body temperature increased [Unknown]
  - Tremor [Unknown]
  - Dehydration [Fatal]
  - Depressed level of consciousness [Unknown]
  - Neuroleptic malignant syndrome [Fatal]

NARRATIVE: CASE EVENT DATE: 20150628
